FAERS Safety Report 25829715 (Version 1)
Quarter: 2025Q3

REPORT INFORMATION
  Report Type: Spontaneous
  Country: US (occurrence: US)
  Receive Date: 20250922
  Receipt Date: 20250922
  Transmission Date: 20251021
  Serious: Yes (Other)
  Sender: SPECGX
  Company Number: US-SPECGX-T202501578

PATIENT
  Age: 66 Year
  Sex: Male

DRUGS (4)
  1. DEXTROAMPHETAMINE SACCHARATE, AMPHETAMINE ASPARTATE, DEXTROAMPHETAMINE [Suspect]
     Active Substance: AMPHETAMINE ASPARTATE\AMPHETAMINE SULFATE\DEXTROAMPHETAMINE SACCHARATE\DEXTROAMPHETAMINE SULFATE
     Indication: Product used for unknown indication
     Route: 065
  2. FENTANYL [Suspect]
     Active Substance: FENTANYL
     Indication: Product used for unknown indication
     Route: 065
  3. COCAINE [Suspect]
     Active Substance: COCAINE
     Indication: Product used for unknown indication
     Route: 065
  4. PHENCYCLIDINE [Suspect]
     Active Substance: PHENCYCLIDINE
     Indication: Product used for unknown indication
     Route: 065

REACTIONS (8)
  - Respiratory depression [Unknown]
  - Unresponsive to stimuli [Unknown]
  - Sepsis [Unknown]
  - Chronic obstructive pulmonary disease [Unknown]
  - Endotracheal intubation [Unknown]
  - Rhabdomyolysis [Unknown]
  - Substance use [Unknown]
  - Miosis [Unknown]
